FAERS Safety Report 22048951 (Version 1)
Quarter: 2023Q1

REPORT INFORMATION
  Report Type: Other
  Country: TW (occurrence: None)
  Receive Date: 20230301
  Receipt Date: 20230301
  Transmission Date: 20230418
  Serious: Yes (Death, Hospitalization)
  Sender: FDA-Public Use
  Company Number: TW-DEXPHARM-20230487

PATIENT
  Age: 42 Year
  Sex: Male

DRUGS (5)
  1. DICLOFENAC [Suspect]
     Active Substance: DICLOFENAC
     Indication: Influenza like illness
  2. IBUPROFEN [Suspect]
     Active Substance: IBUPROFEN
  3. MEFENAMIC ACID [Suspect]
     Active Substance: MEFENAMIC ACID
     Indication: Influenza like illness
  4. ACETAMINOPHEN [Suspect]
     Active Substance: ACETAMINOPHEN
     Indication: Influenza like illness
  5. FAMOTIDINE [Suspect]
     Active Substance: FAMOTIDINE
     Indication: Influenza like illness

REACTIONS (5)
  - Drug ineffective [Fatal]
  - Stevens-Johnson syndrome [Fatal]
  - Vanishing bile duct syndrome [Fatal]
  - Hypovolaemic shock [Fatal]
  - Septic shock [Fatal]
